FAERS Safety Report 13531062 (Version 1)
Quarter: 2017Q2

REPORT INFORMATION
  Report Type: Spontaneous
  Country: DK (occurrence: DK)
  Receive Date: 20170510
  Receipt Date: 20170510
  Transmission Date: 20170830
  Serious: Yes (Hospitalization, Disabling)
  Sender: FDA-Public Use
  Company Number: DK-ORION CORPORATION ORION PHARMA-17_00002340

PATIENT
  Age: 69 Year
  Sex: Male

DRUGS (5)
  1. STELARA [Concomitant]
     Active Substance: USTEKINUMAB
     Indication: PSORIASIS
     Route: 065
     Dates: start: 201511
  2. ENBREL [Concomitant]
     Active Substance: ETANERCEPT
     Indication: PSORIASIS
     Route: 065
     Dates: start: 200703, end: 201511
  3. METHOTREXATE (TRADE NAME UNKNOWN) [Suspect]
     Active Substance: METHOTREXATE
     Route: 065
     Dates: start: 201008, end: 201309
  4. METHOTREXATE (TRADE NAME UNKNOWN) [Suspect]
     Active Substance: METHOTREXATE
     Indication: PSORIASIS
     Route: 065
     Dates: start: 2000, end: 20070328
  5. METHOTREXATE (TRADE NAME UNKNOWN) [Suspect]
     Active Substance: METHOTREXATE
     Route: 065
     Dates: start: 201411, end: 201502

REACTIONS (8)
  - Varices oesophageal [Not Recovered/Not Resolved]
  - Splenomegaly [Not Recovered/Not Resolved]
  - Chronic hepatic failure [Not Recovered/Not Resolved]
  - Ascites [Recovered/Resolved]
  - Hepatic cirrhosis [Not Recovered/Not Resolved]
  - Drug ineffective [Unknown]
  - Serum procollagen type III N-terminal propeptide increased [Unknown]
  - Biliary cirrhosis [Not Recovered/Not Resolved]

NARRATIVE: CASE EVENT DATE: 201512
